FAERS Safety Report 9162393 (Version 2)
Quarter: 2013Q2

REPORT INFORMATION
  Report Type: Spontaneous
  Country: GB (occurrence: None)
  Receive Date: 20130225
  Receipt Date: 20130403
  Transmission Date: 20140414
  Serious: Yes (Disabling, Other)
  Sender: FDA-Public Use
  Company Number: 2013-00440

PATIENT
  Age: 73 Year
  Sex: Male
  Weight: 76 kg

DRUGS (8)
  1. SIMVASTATIN [Suspect]
     Indication: PRODUCT USED FOR UNKNOWN INDICATION
  2. DAKTARIN [Suspect]
     Indication: ORAL FUNGAL INFECTION
     Route: 061
     Dates: start: 20120713, end: 20120720
  3. ATENOLOL [Concomitant]
  4. RAMIPRIL [Concomitant]
  5. BENDROFLUMETHAZIDE [Concomitant]
  6. DIPYRIDAMOLE [Concomitant]
  7. ASPIRIN [Concomitant]
  8. CLOPIDOGREL [Concomitant]

REACTIONS (4)
  - Ocular myasthenia [None]
  - Eyelid ptosis [None]
  - Drug interaction [None]
  - Drug prescribing error [None]
